FAERS Safety Report 16624601 (Version 1)
Quarter: 2019Q3

REPORT INFORMATION
  Report Type: Spontaneous
  Country: US (occurrence: US)
  Receive Date: 20190723
  Receipt Date: 20190723
  Transmission Date: 20191004
  Serious: Yes (Disabling)
  Sender: FDA-Public Use
  Company Number: None

PATIENT
  Age: 56 Year
  Sex: Male
  Weight: 85.5 kg

DRUGS (1)
  1. EPCLUSA [Suspect]
     Active Substance: SOFOSBUVIR\VELPATASVIR
     Indication: HEPATITIS C
     Dates: start: 20171213, end: 20180313

REACTIONS (5)
  - Middle insomnia [None]
  - Pain [None]
  - Arthralgia [None]
  - Blood uric acid increased [None]
  - Pain in extremity [None]

NARRATIVE: CASE EVENT DATE: 20180212
